FAERS Safety Report 8734500 (Version 2)
Quarter: 2015Q2

REPORT INFORMATION
  Report Type: Report from Study
  Country: US (occurrence: US)
  Receive Date: 20120821
  Receipt Date: 20150408
  Transmission Date: 20150821
  Serious: Yes (Other)
  Sender: FDA-Public Use
  Company Number: US-ROCHE-1100631

PATIENT
  Sex: Male

DRUGS (3)
  1. ACTIVASE [Suspect]
     Active Substance: ALTEPLASE
     Route: 040
  2. ACTIVASE [Suspect]
     Active Substance: ALTEPLASE
     Indication: ACUTE MYOCARDIAL INFARCTION
     Route: 040
  3. NITROGLYCERINE [Suspect]
     Active Substance: NITROGLYCERIN
     Indication: PRODUCT USED FOR UNKNOWN INDICATION
     Route: 041

REACTIONS (12)
  - Hypotension [Unknown]
  - Sinus bradycardia [Unknown]
  - Asthenia [Unknown]
  - Chest pain [Recovered/Resolved]
  - Blood creatine phosphokinase increased [Unknown]
  - Dysarthria [Unknown]
  - Nausea [Unknown]
  - Heart injury [Unknown]
  - Feeling cold [Unknown]
  - Confusional state [Unknown]
  - Ventricular extrasystoles [Unknown]
  - Restlessness [Unknown]
